FAERS Safety Report 12762730 (Version 1)
Quarter: 2016Q3

REPORT INFORMATION
  Report Type: Spontaneous
  Country: US (occurrence: US)
  Receive Date: 20160920
  Receipt Date: 20160920
  Transmission Date: 20161109
  Serious: Yes (Death, Hospitalization)
  Sender: FDA-Public Use
  Company Number: US-JNJFOC-20160916233

PATIENT
  Age: 73 Year
  Sex: Male

DRUGS (1)
  1. XARELTO [Suspect]
     Active Substance: RIVAROXABAN
     Indication: PRODUCT USED FOR UNKNOWN INDICATION
     Route: 048
     Dates: start: 201509

REACTIONS (2)
  - Death [Fatal]
  - Cardiac disorder [Not Recovered/Not Resolved]

NARRATIVE: CASE EVENT DATE: 20160825
